FAERS Safety Report 11403125 (Version 1)
Quarter: 2015Q3

REPORT INFORMATION
  Report Type: Spontaneous
  Country: US (occurrence: None)
  Receive Date: 20150820
  Receipt Date: 20150820
  Transmission Date: 20151125
  Serious: Yes (Other)
  Sender: FDA-Public Use
  Company Number: None

PATIENT
  Age: 60 Year
  Sex: Female

DRUGS (10)
  1. PLEGRIDY [Suspect]
     Active Substance: PEGINTERFERON BETA-1A
     Indication: MULTIPLE SCLEROSIS
     Dosage: Q2W
     Dates: start: 20150725, end: 20150725
  2. DICYCLOMINE [Concomitant]
     Active Substance: DICYCLOMINE HYDROCHLORIDE
  3. VIT. D [Concomitant]
  4. BENEFIBER [Concomitant]
     Active Substance: STARCH, WHEAT
  5. HYDROCODEIN ACETATE [Concomitant]
  6. TOPRAMATE [Concomitant]
  7. DEXYLANT [Concomitant]
  8. SERTRALINE HCL [Concomitant]
     Active Substance: SERTRALINE HYDROCHLORIDE
  9. TRAZODONE [Concomitant]
     Active Substance: TRAZODONE HYDROCHLORIDE
  10. CLONAZEPAM. [Concomitant]
     Active Substance: CLONAZEPAM

REACTIONS (12)
  - Pyrexia [None]
  - Injection site rash [None]
  - Hyperhidrosis [None]
  - Photosensitivity reaction [None]
  - Chills [None]
  - Injection site pain [None]
  - Abdominal pain upper [None]
  - Vertigo [None]
  - Abdominal pain [None]
  - Drug hypersensitivity [None]
  - Influenza [None]
  - Cough [None]

NARRATIVE: CASE EVENT DATE: 20150725
